FAERS Safety Report 8991914 (Version 2)
Quarter: 2013Q1

REPORT INFORMATION
  Report Type: Spontaneous
  Country: CN (occurrence: CN)
  Receive Date: 20121231
  Receipt Date: 20130108
  Transmission Date: 20140127
  Serious: Yes (Other)
  Sender: FDA-Public Use
  Company Number: CN-ROCHE-1174471

PATIENT
  Age: 81 Year
  Sex: Male

DRUGS (21)
  1. MABTHERA [Suspect]
     Indication: DIFFUSE LARGE B-CELL LYMPHOMA
     Route: 041
     Dates: start: 200808
  2. MABTHERA [Suspect]
     Route: 041
     Dates: start: 200910
  3. MABTHERA [Suspect]
     Route: 041
     Dates: start: 20121031, end: 20121102
  4. CAELYX [Suspect]
     Indication: DIFFUSE LARGE B-CELL LYMPHOMA
     Route: 041
     Dates: start: 20111205
  5. CISPLATIN [Suspect]
     Indication: DIFFUSE LARGE B-CELL LYMPHOMA
     Route: 041
     Dates: start: 2011
  6. GEMCITABINE [Suspect]
     Indication: DIFFUSE LARGE B-CELL LYMPHOMA
     Route: 041
     Dates: start: 2011
  7. CYCLOPHOSPHAMIDE [Concomitant]
     Indication: DIFFUSE LARGE B-CELL LYMPHOMA
     Route: 041
     Dates: start: 200808
  8. CYCLOPHOSPHAMIDE [Concomitant]
     Route: 041
     Dates: start: 200910
  9. CYCLOPHOSPHAMIDE [Concomitant]
     Route: 041
     Dates: start: 20121031, end: 20121102
  10. ADRIAMYCIN [Concomitant]
     Indication: DIFFUSE LARGE B-CELL LYMPHOMA
     Route: 041
     Dates: start: 200808
  11. ADRIAMYCIN [Concomitant]
     Route: 041
     Dates: start: 200910
  12. ADRIAMYCIN [Concomitant]
     Route: 041
     Dates: start: 20121031, end: 20121102
  13. VINCRISTINE [Concomitant]
     Indication: DIFFUSE LARGE B-CELL LYMPHOMA
     Route: 041
     Dates: start: 200808
  14. VINCRISTINE [Concomitant]
     Route: 041
     Dates: start: 200910
  15. VINCRISTINE [Concomitant]
     Route: 041
     Dates: start: 20121031, end: 20121102
  16. PREDNISONE [Concomitant]
     Indication: DIFFUSE LARGE B-CELL LYMPHOMA
     Route: 048
     Dates: start: 200808
  17. PREDNISONE [Concomitant]
     Route: 048
     Dates: start: 200910
  18. PREDNISONE [Concomitant]
     Route: 048
     Dates: start: 20121031, end: 20121102
  19. DEXAMETHASONE [Concomitant]
     Indication: DIFFUSE LARGE B-CELL LYMPHOMA
     Route: 048
     Dates: start: 200808
  20. DEXAMETHASONE [Concomitant]
     Route: 048
     Dates: start: 200910
  21. DEXAMETHASONE [Concomitant]
     Route: 048
     Dates: start: 20121031

REACTIONS (3)
  - Lymphoma [Recovering/Resolving]
  - Neurodermatitis [Not Recovered/Not Resolved]
  - White blood cell count decreased [Recovered/Resolved]
